FAERS Safety Report 17412979 (Version 1)
Quarter: 2020Q1

REPORT INFORMATION
  Report Type: Spontaneous
  Country: US (occurrence: US)
  Receive Date: 20200213
  Receipt Date: 20200213
  Transmission Date: 20200409
  Serious: No
  Sender: FDA-Public Use
  Company Number: US-TEVA-2020-US-1183540

PATIENT
  Sex: Male

DRUGS (1)
  1. DIAZEPAM TEVA [Suspect]
     Active Substance: DIAZEPAM
     Indication: BALANCE DISORDER
     Route: 065

REACTIONS (3)
  - Product dispensing error [Unknown]
  - Product substitution issue [Unknown]
  - Abdominal discomfort [Unknown]
